FAERS Safety Report 15114498 (Version 7)
Quarter: 2019Q4

REPORT INFORMATION
  Report Type: Report from Study
  Country: US (occurrence: US)
  Receive Date: 20180706
  Receipt Date: 20191203
  Transmission Date: 20200122
  Serious: Yes (Other)
  Sender: FDA-Public Use
  Company Number: US-ROCHE-2144133

PATIENT
  Age: 57 Year
  Sex: Female
  Weight: 75.36 kg

DRUGS (12)
  1. DEXTROAMPHETAMINE [DEXAMFETAMINE] [Concomitant]
     Active Substance: DEXTROAMPHETAMINE
     Dosage: TIME RELEASED AND USED AS COCKTAIL WITH SERTRALINE
     Route: 065
  2. OCREVUS [Suspect]
     Active Substance: OCRELIZUMAB
     Dosage: SECOND FULL DOSE
     Route: 042
     Dates: start: 20190423
  3. SERTRALINE [Concomitant]
     Active Substance: SERTRALINE HYDROCHLORIDE
     Route: 065
  4. OCREVUS [Suspect]
     Active Substance: OCRELIZUMAB
     Dosage: FIRST FULL DOSE
     Route: 042
     Dates: start: 20180627
  5. ADDERALL [Concomitant]
     Active Substance: AMPHETAMINE ASPARTATE\AMPHETAMINE SULFATE\DEXTROAMPHETAMINE SACCHARATE\DEXTROAMPHETAMINE SULFATE
     Indication: DEPRESSION
     Dosage: ONGOING: YES; STARTED GENERIC ADDERALL 2010-2012
     Route: 065
  6. LEVOTHYROXINE. [Concomitant]
     Active Substance: LEVOTHYROXINE
     Indication: THYROID DISORDER
     Dosage: 50 MCG ONCE A DAY; ONGOING: YES
     Route: 065
  7. OCREVUS [Suspect]
     Active Substance: OCRELIZUMAB
     Indication: RELAPSING-REMITTING MULTIPLE SCLEROSIS
     Dosage: FIRST INFUSION
     Route: 042
     Dates: start: 20171212
  8. OCREVUS [Suspect]
     Active Substance: OCRELIZUMAB
     Dosage: SECOND DOSE
     Route: 042
     Dates: start: 20171226
  9. RITUXAN [Suspect]
     Active Substance: RITUXIMAB
     Indication: PRODUCT USED FOR UNKNOWN INDICATION
     Route: 065
  10. OCREVUS [Suspect]
     Active Substance: OCRELIZUMAB
     Dosage: SECOND FULL DOSE
     Route: 042
     Dates: start: 20181219
  11. OCREVUS [Suspect]
     Active Substance: OCRELIZUMAB
     Dosage: SECOND FULL DOSE
     Route: 042
     Dates: start: 20191008
  12. ZOLOFT [Concomitant]
     Active Substance: SERTRALINE HYDROCHLORIDE
     Indication: DEPRESSION
     Dosage: STARTED ZOLOFT BETWEEN 2010-2012
     Route: 065

REACTIONS (13)
  - Fatigue [Not Recovered/Not Resolved]
  - Upper respiratory tract infection [Unknown]
  - Therapeutic response shortened [Unknown]
  - Immunodeficiency [Unknown]
  - Asthenia [Not Recovered/Not Resolved]
  - Oropharyngeal pain [Unknown]
  - Discomfort [Recovered/Resolved]
  - Multiple sclerosis [Not Recovered/Not Resolved]
  - Intentional product use issue [Unknown]
  - Malaise [Unknown]
  - Frustration tolerance decreased [Recovered/Resolved]
  - Off label use [Unknown]
  - Fatigue [Unknown]

NARRATIVE: CASE EVENT DATE: 20171226
